FAERS Safety Report 13769706 (Version 1)
Quarter: 2017Q3

REPORT INFORMATION
  Report Type: Spontaneous
  Country: PT (occurrence: PT)
  Receive Date: 20170719
  Receipt Date: 20170719
  Transmission Date: 20171127
  Serious: Yes (Other)
  Sender: FDA-Public Use
  Company Number: PT-PFIZER INC-3036141

PATIENT
  Age: 61 Year
  Sex: Female
  Weight: 47 kg

DRUGS (8)
  1. DEXAMETHASONE. [Concomitant]
     Active Substance: DEXAMETHASONE
     Indication: ALLERGY PROPHYLAXIS
     Dosage: 20 MG, FREQ: 1 DAY; INTERVAL: 1.
     Route: 042
     Dates: start: 20150821, end: 20150821
  2. EPIRUBICIN [Concomitant]
     Active Substance: EPIRUBICIN
     Indication: BREAST CANCER
     Dosage: FREQ: 1 WEEK; INTERVAL: 3
     Route: 042
  3. DOCETAXEL. [Concomitant]
     Active Substance: DOCETAXEL
     Indication: BREAST CANCER
     Dosage: FREQ: 1 WEEK; INTERVAL: 3
     Route: 042
     Dates: start: 20150306, end: 20150605
  4. GLUCOSE [Concomitant]
     Active Substance: DEXTROSE
     Indication: BREAST CANCER
     Dosage: 250 ML, FREQ: 1 DAY; INTERVAL: 1.
     Route: 042
     Dates: start: 20150821, end: 20150821
  5. CLEMASTINE [Concomitant]
     Active Substance: CLEMASTINE
     Indication: ALLERGY PROPHYLAXIS
     Dosage: 2 MG, FREQ: 1 DAY; INTERVAL: 1.
     Route: 042
     Dates: start: 20150821, end: 20150821
  6. ONDANSETRON [Concomitant]
     Active Substance: ONDANSETRON
     Indication: ALLERGY PROPHYLAXIS
     Dosage: 8 MG, FREQ: 1 DAY; INTERVAL: 1.
     Route: 042
     Dates: start: 20150821, end: 20150821
  7. RANITIDINE. [Concomitant]
     Active Substance: RANITIDINE
     Indication: ALLERGY PROPHYLAXIS
     Dosage: 50 MG, FREQ: 1 DAY; INTERVAL: 1.
     Route: 042
     Dates: start: 20150821, end: 20150821
  8. PACLITAXEL. [Suspect]
     Active Substance: PACLITAXEL
     Indication: BREAST CANCER
     Dosage: 110 MG, FREQ: 1 WEEK; INTERVAL: 1.
     Route: 042
     Dates: start: 20150821, end: 20150821

REACTIONS (2)
  - Flushing [Recovered/Resolved]
  - Breast pain [Recovered/Resolved]

NARRATIVE: CASE EVENT DATE: 20150821
